FAERS Safety Report 16911014 (Version 2)
Quarter: 2019Q4

REPORT INFORMATION
  Report Type: Spontaneous
  Country: FR (occurrence: FR)
  Receive Date: 20191012
  Receipt Date: 20191216
  Transmission Date: 20200122
  Serious: Yes (Hospitalization)
  Sender: FDA-Public Use
  Company Number: FR-ACCORD-157306

PATIENT
  Sex: Male
  Weight: 3.62 kg

DRUGS (2)
  1. ATARAX [Concomitant]
     Active Substance: HYDROXYZINE HYDROCHLORIDE
     Indication: PRODUCT USED FOR UNKNOWN INDICATION
     Dosage: IF REQUIRED
     Route: 064
     Dates: end: 20190821
  2. QUETIAPINE. [Suspect]
     Active Substance: QUETIAPINE
     Indication: PRODUCT USED FOR UNKNOWN INDICATION
     Route: 064
     Dates: end: 20190821

REACTIONS (5)
  - Anaemia [Recovered/Resolved]
  - Neutropenia [Recovered/Resolved]
  - Foetal exposure during pregnancy [Unknown]
  - Bicytopenia [Recovered/Resolved]
  - Thrombocytopenia [Recovered/Resolved]

NARRATIVE: CASE EVENT DATE: 20190821
